FAERS Safety Report 9447794 (Version 1)
Quarter: 2013Q3

REPORT INFORMATION
  Report Type: Spontaneous
  Country: US (occurrence: None)
  Receive Date: 20130807
  Receipt Date: 20130807
  Transmission Date: 20140515
  Serious: Yes (Hospitalization)
  Sender: FDA-Public Use
  Company Number: None

PATIENT
  Age: 71 Year
  Sex: Male
  Weight: 52.16 kg

DRUGS (14)
  1. DOXORUBICIN [Suspect]
     Indication: ACUTE MYELOID LEUKAEMIA
     Dosage: 64 MG/DAY 4/IV INFUSION
     Route: 042
     Dates: start: 20130722
  2. BORTEZOMIB [Suspect]
     Indication: ACUTE MYELOID LEUKAEMIA
     Dosage: D1, D4, 8, 11
     Route: 058
     Dates: start: 20130719
  3. ACYCLOVIR [Concomitant]
  4. ALLOPURINOL [Concomitant]
  5. MEPRON [Concomitant]
  6. LIORESAL [Concomitant]
  7. DULCOLAX [Concomitant]
  8. DEXILANT [Concomitant]
  9. LEVAQUIN [Concomitant]
  10. ZOFRAN [Concomitant]
  11. PROTONIX [Concomitant]
  12. COMPAZINE [Concomitant]
  13. CARAFATE [Concomitant]
  14. VFEND [Concomitant]

REACTIONS (5)
  - Febrile neutropenia [None]
  - Ear pain [None]
  - Dizziness [None]
  - Oesophagitis [None]
  - Pulmonary congestion [None]
